FAERS Safety Report 8344064-1 (Version None)
Quarter: 2012Q2

REPORT INFORMATION
  Report Type: 
  Country: None (occurrence: None)
  Receive Date: 20120508
  Receipt Date: 20110203
  Transmission Date: 20120825
  Serious: No
  Sender: FDA-Public Use
  Company Number: US-TEVA-2011000569

PATIENT
  Sex: Male
  Weight: 100.33 kg

DRUGS (7)
  1. SINEMET [Concomitant]
  2. ZOFRAN [Concomitant]
  3. TREANDA [Suspect]
     Indication: MANTLE CELL LYMPHOMA STAGE IV
     Route: 041
     Dates: start: 20110126
  4. HYDROCHLOROTHIAZIDE [Concomitant]
  5. PRAMIPEXOLE DIHYDROCHLORIDE [Concomitant]
  6. PERCOCET [Concomitant]
  7. RITUXAN [Suspect]
     Route: 042

REACTIONS (2)
  - ADMINISTRATION SITE PAIN [None]
  - INDURATION [None]
